FAERS Safety Report 9012330 (Version 1)
Quarter: 2012Q4

REPORT INFORMATION
  Report Type: Spontaneous
  Country: DK (occurrence: None)
  Receive Date: 20121231
  Receipt Date: 20121231
  Transmission Date: 20130627
  Serious: Yes (Other)
  Sender: FDA-Public Use
  Company Number: 2012MA014321

PATIENT
  Age: 91 Year
  Sex: Male
  Weight: 76.2 kg

DRUGS (18)
  1. HALOPERIDOL [Suspect]
     Indication: PRODUCT USED FOR UNKNOWN INDICATION
     Route: 048
     Dates: start: 20121114
  2. FENTANYL (FENTANYL) [Suspect]
     Indication: PAIN
     Dosage: 25 UG ; QD ; TDER
     Dates: start: 20121112
  3. OMEPRAZOLE [Concomitant]
  4. LISINOPRIL [Concomitant]
  5. DEXAMETHASONE [Concomitant]
  6. METOCLOPRAMIDE [Concomitant]
  7. HYPROMELLOSE [Concomitant]
  8. IBULEVE [Concomitant]
  9. CANESTEN [Concomitant]
  10. CARBOCISTEINE [Concomitant]
  11. ORAMORPH [Concomitant]
  12. MORPHINE [Concomitant]
  13. LEVOMEPROMAZINE [Concomitant]
  14. GLYCOPYRRONIUM [Concomitant]
  15. ZOPICLONE [Concomitant]
  16. MIDAZOLAM [Concomitant]
  17. MIDAZOLAM [Concomitant]
  18. PARACETMAOL [Concomitant]

REACTIONS (23)
  - Incontinence [None]
  - Nausea [None]
  - Apathy [None]
  - Abdominal pain [None]
  - Decreased appetite [None]
  - Weight decreased [None]
  - Fatigue [None]
  - Mobility decreased [None]
  - General physical health deterioration [None]
  - Buttock crushing [None]
  - Memory impairment [None]
  - Ascites [None]
  - Condition aggravated [None]
  - Dyspnoea [None]
  - Aphagia [None]
  - Gastrointestinal motility disorder [None]
  - Disorientation [None]
  - Joint injury [None]
  - Somnolence [None]
  - Wrong technique in drug usage process [None]
  - Gastrointestinal carcinoma [None]
  - Malignant neoplasm progression [None]
  - Indifference [None]
